FAERS Safety Report 17654485 (Version 1)
Quarter: 2020Q2

REPORT INFORMATION
  Report Type: Spontaneous
  Country: US (occurrence: US)
  Receive Date: 20200409
  Receipt Date: 20200409
  Transmission Date: 20200713
  Serious: Yes (Hospitalization)
  Sender: FDA-Public Use
  Company Number: None

PATIENT
  Sex: Female

DRUGS (7)
  1. LEXAPRO [Concomitant]
     Active Substance: ESCITALOPRAM OXALATE
  2. GABAPENTIN. [Concomitant]
     Active Substance: GABAPENTIN
  3. ANASTROZOLE. [Concomitant]
     Active Substance: ANASTROZOLE
  4. EVEROLIMUS 5MG [Suspect]
     Active Substance: EVEROLIMUS
     Indication: INTRADUCTAL PROLIFERATIVE BREAST LESION
     Route: 048
     Dates: start: 20200317
  5. MORPHENE SUL [Concomitant]
  6. EXEMESTANE. [Concomitant]
     Active Substance: EXEMESTANE
  7. LIDO/PRILOCN CRE [Concomitant]

REACTIONS (2)
  - Dyspnoea [None]
  - Hospitalisation [None]
